FAERS Safety Report 25921661 (Version 1)
Quarter: 2025Q4

REPORT INFORMATION
  Report Type: Spontaneous
  Country: JP (occurrence: JP)
  Receive Date: 20251014
  Receipt Date: 20251014
  Transmission Date: 20260118
  Serious: Yes (Hospitalization, Other)
  Sender: JOHNSON AND JOHNSON
  Company Number: JP-MTPC-MTPC2025-0018308

PATIENT
  Age: 5 Decade
  Sex: Female

DRUGS (2)
  1. REMICADE [Suspect]
     Active Substance: INFLIXIMAB
     Indication: Crohn^s disease
     Route: 065
  2. THIOINOSINE [Suspect]
     Active Substance: THIOINOSINE
     Indication: Crohn^s disease
     Route: 065

REACTIONS (4)
  - Varicella zoster pneumonia [Unknown]
  - Herpes zoster meningomyelitis [Recovering/Resolving]
  - Intestinal obstruction [Recovering/Resolving]
  - Herpes zoster [Unknown]
